FAERS Safety Report 9509062 (Version 2)
Quarter: 2013Q3

REPORT INFORMATION
  Report Type: Spontaneous
  Country: US (occurrence: US)
  Receive Date: 20130909
  Receipt Date: 20130909
  Transmission Date: 20140515
  Serious: Yes (Other)
  Sender: FDA-Public Use
  Company Number: US-BRISTOL-MYERS SQUIBB COMPANY-17370206

PATIENT
  Sex: Female

DRUGS (2)
  1. ABILIFY [Suspect]
     Indication: DEPRESSION
     Dosage: START WITH 20MG?TAB:POTENCY:25MG
     Route: 048
     Dates: start: 201207
  2. RISPERIDONE [Suspect]
     Indication: ANXIETY

REACTIONS (4)
  - Depression [Unknown]
  - Sleep disorder [Unknown]
  - Stress [Unknown]
  - Drug ineffective [Unknown]
